FAERS Safety Report 5209951-1 (Version None)
Quarter: 2006Q4

REPORT INFORMATION
  Report Type: 
  Country: None (occurrence: None)
  Receive Date: 20061128
  Receipt Date: 20060629
  Transmission Date: 20070319
  Serious: Yes (Other)
  Sender: FDA-Public Use
  Company Number: 2006082125

PATIENT
  Age: 60 Year
  Sex: Male
  Weight: 124.2856 kg

DRUGS (7)
  1. TIKOSYN [Suspect]
     Indication: ATRIAL FIBRILLATION
     Dosage: 500 MCG (250 MCG, 2 IN 1 D), UNKNOWN
     Dates: start: 20060501
  2. AMIODARONE HCL [Concomitant]
  3. CASODEX [Concomitant]
  4. LASIX [Concomitant]
  5. PRILOSEC [Concomitant]
  6. COUMADIN [Concomitant]
  7. SPIRONOLACTONE [Concomitant]

REACTIONS (1)
  - HYPERTENSION [None]
